FAERS Safety Report 12528500 (Version 3)
Quarter: 2017Q2

REPORT INFORMATION
  Report Type: Spontaneous
  Country: AT (occurrence: AT)
  Receive Date: 20160705
  Receipt Date: 20170606
  Transmission Date: 20170830
  Serious: Yes (Hospitalization)
  Sender: FDA-Public Use
  Company Number: AT-ASTRAZENECA-2016SE72368

PATIENT
  Age: 53 Year
  Sex: Female

DRUGS (24)
  1. DEPAKINE [Suspect]
     Active Substance: VALPROATE SODIUM
     Route: 065
     Dates: start: 20160517, end: 20160525
  2. NACL [Concomitant]
     Active Substance: SODIUM CHLORIDE
     Dates: start: 20160519, end: 20160519
  3. NACL [Concomitant]
     Active Substance: SODIUM CHLORIDE
     Dates: start: 20160520, end: 20160520
  4. NACL [Concomitant]
     Active Substance: SODIUM CHLORIDE
     Dates: start: 20160521, end: 20160521
  5. AKINETON [Concomitant]
     Active Substance: BIPERIDEN HYDROCHLORIDE
     Dates: start: 20160523, end: 20160525
  6. ESOMEPRAZOLE [Suspect]
     Active Substance: ESOMEPRAZOLE
     Route: 048
  7. MAGNOSOLV [Concomitant]
  8. KEMADRIN [Concomitant]
     Active Substance: PROCYCLIDINE HYDROCHLORIDE
     Dates: start: 20160517, end: 20160522
  9. LEPONEX [Suspect]
     Active Substance: CLOZAPINE
     Dosage: 200.0MG UNKNOWN
     Route: 065
     Dates: start: 20160517
  10. RISPERDAL CONSTA [Suspect]
     Active Substance: RISPERIDONE
     Dosage: 50 MG, EVERY 50 DAYS
     Route: 030
     Dates: start: 20160509
  11. TEMESTA [Concomitant]
     Active Substance: LORAZEPAM
     Dates: start: 20160517, end: 20160518
  12. NACL [Concomitant]
     Active Substance: SODIUM CHLORIDE
     Dates: start: 20160525, end: 20160525
  13. TROSPIUM CHLORIDE. [Concomitant]
     Active Substance: TROSPIUM CHLORIDE
     Dates: start: 20160517, end: 20160522
  14. TEMESTA [Concomitant]
     Active Substance: LORAZEPAM
     Dates: start: 20160519, end: 20160523
  15. TEMESTA [Concomitant]
     Active Substance: LORAZEPAM
     Dates: start: 20160524, end: 20160525
  16. NACL [Concomitant]
     Active Substance: SODIUM CHLORIDE
     Dates: start: 20160523, end: 20160523
  17. LEPONEX [Suspect]
     Active Substance: CLOZAPINE
     Dosage: 100.0MG UNKNOWN
     Route: 065
  18. RISPERDAL CONSTA [Suspect]
     Active Substance: RISPERIDONE
     Route: 048
     Dates: start: 20160517, end: 20160522
  19. NACL [Concomitant]
     Active Substance: SODIUM CHLORIDE
     Dates: start: 20160518, end: 20160518
  20. ESOMEPRAZOLE [Suspect]
     Active Substance: ESOMEPRAZOLE
     Dosage: GEBRO PHARMA , 20 MG, DAILY
     Route: 048
     Dates: start: 20160517, end: 20160525
  21. THYREX [Concomitant]
     Active Substance: LEVOTHYROXINE SODIUM
     Dates: start: 20160517, end: 20160525
  22. MAGNOSOLV [Concomitant]
     Dosage: 01, DAILY
     Dates: start: 20160517, end: 20160525
  23. NACL [Concomitant]
     Active Substance: SODIUM CHLORIDE
     Dates: start: 20160517, end: 20160517
  24. NACL [Concomitant]
     Active Substance: SODIUM CHLORIDE
     Dates: start: 20160524, end: 20160524

REACTIONS (3)
  - Hyponatraemia [Recovered/Resolved]
  - Salivary hypersecretion [Recovered/Resolved]
  - Parkinsonism [Recovered/Resolved]

NARRATIVE: CASE EVENT DATE: 20160523
